FAERS Safety Report 12984126 (Version 1)
Quarter: 2016Q4

REPORT INFORMATION
  Report Type: Spontaneous
  Country: JP (occurrence: JP)
  Receive Date: 20161129
  Receipt Date: 20161129
  Transmission Date: 20170207
  Serious: Yes (Death, Hospitalization)
  Sender: FDA-Public Use
  Company Number: JP-MYLANLABS-2016M1051450

PATIENT

DRUGS (1)
  1. PREDNISOLONE. [Suspect]
     Active Substance: PREDNISOLONE
     Indication: RHEUMATOID ARTHRITIS
     Dosage: 7.5 MG DAILY
     Route: 065

REACTIONS (2)
  - Respiratory arrest [Fatal]
  - Mycobacterium chelonae infection [Fatal]
